FAERS Safety Report 5662868-0 (Version None)
Quarter: 2008Q1

REPORT INFORMATION
  Report Type: 
  Country: None (occurrence: None)
  Receive Date: 20080311
  Receipt Date: 20080311
  Transmission Date: 20080703
  Serious: Yes (Life-Threatening, Hospitalization)
  Sender: FDA-Public Use
  Company Number: None

PATIENT
  Sex: Female
  Weight: 59.648 kg

DRUGS (3)
  1. COUMADIN [Suspect]
     Indication: ATRIAL FIBRILLATION
     Dosage: 2MG 3/DAYSWEEK, 1MG/4DAYS/WEEK PO MANY YEARS
     Route: 048
  2. COUMADIN [Suspect]
     Indication: PULMONARY EMBOLISM
     Dosage: 2MG 3/DAYSWEEK, 1MG/4DAYS/WEEK PO MANY YEARS
     Route: 048
  3. TAMIFLU [Suspect]
     Indication: INFLUENZA
     Dosage: TWICE DAILY PO
     Route: 048
     Dates: start: 20080304, end: 20080307

REACTIONS (3)
  - ABDOMINAL WALL HAEMATOMA [None]
  - ACTIVATED PARTIAL THROMBOPLASTIN TIME PROLONGED [None]
  - INTERNATIONAL NORMALISED RATIO INCREASED [None]
